FAERS Safety Report 8251385-X (Version None)
Quarter: 2012Q2

REPORT INFORMATION
  Report Type: 
  Country: None (occurrence: None)
  Receive Date: 20120402
  Receipt Date: 20120327
  Transmission Date: 20120825
  Serious: Yes (Hospitalization, Other)
  Sender: FDA-Public Use
  Company Number: US-PFIZER INC-2012032316

PATIENT
  Sex: Female
  Weight: 105.22 kg

DRUGS (19)
  1. METFORMIN [Concomitant]
     Dosage: 500 MG, 2X/DAY
     Route: 048
     Dates: start: 20091208
  2. FLUTICASONE PROPIONATE [Concomitant]
     Dosage: 50 MCG/ACT NASAL SUSPENSION SPRAY ONCE IN EACH NOSTRIL DAILY
     Dates: start: 20040831
  3. TRAZODONE HYDROCHLORIDE [Concomitant]
     Indication: INSOMNIA
     Dosage: 100 MG AT BEDTIME AS NEEDED
     Route: 048
     Dates: start: 20040830
  4. LYRICA [Suspect]
     Indication: NEUROPATHY PERIPHERAL
     Dosage: 150 MG, 2X/DAY
     Route: 048
     Dates: start: 20090730
  5. LYRICA [Suspect]
     Dosage: 150 MG, 4X/DAY
     Route: 048
     Dates: end: 20120308
  6. OMEPRAZOLE [Concomitant]
     Dosage: 40 MG, 2X/DAY
     Route: 048
     Dates: start: 20100127
  7. METOPROLOL TARTRATE [Concomitant]
     Dosage: 50 MG, 2X/DAY
     Route: 048
     Dates: start: 20090203
  8. LASIX [Concomitant]
     Dosage: 40 MG, ALTERNATE DAY
     Dates: start: 20080310
  9. TIZANIDINE [Concomitant]
     Indication: BACK PAIN
     Dosage: 4 MG, AS NEEDED
  10. AMITRIPTYLINE [Concomitant]
     Dosage: 25MG DAILY
     Route: 048
     Dates: start: 20100216
  11. LYRICA [Suspect]
     Dosage: 150 MG, 2X/DAY (75MG TWO CAPSULES TWO TIMES A DAY)
     Route: 048
     Dates: start: 20120308
  12. CIPROFLOXACIN [Concomitant]
     Dosage: UNK
  13. GLYBURIDE [Concomitant]
     Dosage: 5 MG, 1X/DAY
     Route: 048
     Dates: start: 20091208
  14. CARAFATE [Concomitant]
     Dosage: 1 TSP EVERY 4 HOURS (1 G/10 ML)
     Route: 048
     Dates: start: 20090716
  15. LYRICA [Suspect]
     Dosage: 150 MG, 4X/DAY
     Route: 048
     Dates: start: 20110101, end: 20120301
  16. TRICOR [Concomitant]
     Dosage: 145 MG, 1X/DAY
     Route: 048
     Dates: start: 20100219
  17. KLOR-CON [Concomitant]
     Dosage: 10 MEQ, 1X/DAY
     Route: 048
     Dates: start: 20090323
  18. XANAX [Concomitant]
     Dosage: 1 MG, 3X/DAY
     Route: 048
     Dates: start: 20040830
  19. ALBUTEROL SULFATE [Concomitant]
     Dosage: 1 UNIT DOSE IN NEBULIZER EVERY 4 HRS
     Dates: start: 20110716

REACTIONS (14)
  - BALANCE DISORDER [None]
  - RENAL FAILURE [None]
  - DEHYDRATION [None]
  - SUICIDAL IDEATION [None]
  - BLOOD GLUCOSE INCREASED [None]
  - SPEECH DISORDER [None]
  - DEPRESSION [None]
  - MASTITIS [None]
  - FATIGUE [None]
  - ATAXIA [None]
  - CELLULITIS [None]
  - DIZZINESS [None]
  - DRUG INEFFECTIVE [None]
  - TRANSIENT ISCHAEMIC ATTACK [None]
